FAERS Safety Report 7648299-2 (Version None)
Quarter: 2011Q3

REPORT INFORMATION
  Report Type: 
  Country: None (occurrence: None)
  Receive Date: 20110801
  Receipt Date: 20110726
  Transmission Date: 20111222
  Serious: Yes (Death, Hospitalization)
  Sender: FDA-Public Use
  Company Number: JP-PFIZER INC-2011164222

PATIENT
  Age: 71 Year
  Sex: Male
  Weight: 62 kg

DRUGS (7)
  1. FAMOTIDINE [Concomitant]
     Indication: PROPHYLAXIS
     Dosage: 20 MG, 1X/DAY
     Route: 048
     Dates: start: 20110224
  2. LASIX [Concomitant]
     Indication: PLEURAL EFFUSION
     Dosage: 40 MG, 1X/DAY
     Route: 048
     Dates: start: 20110221
  3. HUSTAZOL [Concomitant]
     Indication: COUGH
     Dosage: 10 MG, 3X/DAY
     Route: 048
     Dates: start: 20110404
  4. REBAMIPIDE [Concomitant]
     Indication: PROPHYLAXIS
     Dosage: 100 MG, 3X/DAY
     Route: 048
     Dates: start: 20110224
  5. ALDACTONE [Concomitant]
     Indication: PLEURAL EFFUSION
     Dosage: 25 MG, 1X/DAY
     Route: 048
     Dates: start: 20110429
  6. SUTENT [Suspect]
     Indication: RENAL CELL CARCINOMA
     Dosage: 37.5 MG, 1X/DAY
     Route: 048
     Dates: start: 20110310, end: 20110403
  7. DECADRON [Concomitant]
     Indication: BRAIN OEDEMA
     Dosage: 1.5 MG, 1X/DAY
     Route: 048
     Dates: start: 20110224

REACTIONS (4)
  - DISEASE PROGRESSION [None]
  - RENAL CELL CARCINOMA [None]
  - MYOCARDIAL INFARCTION [None]
  - PLATELET COUNT DECREASED [None]
